FAERS Safety Report 8553471-3 (Version None)
Quarter: 2012Q3

REPORT INFORMATION
  Report Type: 
  Country: None (occurrence: None)
  Receive Date: 20120731
  Receipt Date: 20120726
  Transmission Date: 20120928
  Serious: Yes (Hospitalization, Other)
  Sender: FDA-Public Use
  Company Number: US-PFIZER INC-2012166828

PATIENT
  Sex: Female

DRUGS (4)
  1. LYRICA [Suspect]
     Indication: NEUROPATHY PERIPHERAL
     Dosage: 50 MG, 2X/DAY
  2. MAGNESIUM [Concomitant]
     Dosage: 400 MG, DAILY
  3. KLOR-CON [Concomitant]
     Dosage: 10 UG, 1X/DAY
     Route: 048
  4. VITAMIN B6 [Concomitant]
     Dosage: 100 MG, 1X/DAY
     Route: 048

REACTIONS (4)
  - NEUROPATHY PERIPHERAL [None]
  - SURGERY [None]
  - PNEUMONIA STAPHYLOCOCCAL [None]
  - OVARIAN CANCER STAGE IV [None]
